FAERS Safety Report 8621746-5 (Version None)
Quarter: 2012Q3

REPORT INFORMATION
  Report Type: 
  Country: None (occurrence: None)
  Receive Date: 20120821
  Receipt Date: 20120821
  Transmission Date: 20120928
  Serious: Yes (Hospitalization)
  Sender: FDA-Public Use
  Company Number: None

PATIENT
  Age: 29 Year
  Sex: Female
  Weight: 83.6 kg

DRUGS (1)
  1. BUPRENORPHINE HCL AND NALOXONE HCL [Suspect]
     Indication: DRUG DEPENDENCE
     Dosage: 8 MG EVERY DAY SUBLINGUAL
     Route: 060
     Dates: start: 20120511, end: 20120618

REACTIONS (3)
  - ANAEMIA [None]
  - DIARRHOEA [None]
  - CONSTIPATION [None]
